FAERS Safety Report 9174864 (Version 2)
Quarter: 2013Q1

REPORT INFORMATION
  Report Type: Spontaneous
  Country: IT (occurrence: IT)
  Receive Date: 20130320
  Receipt Date: 20130325
  Transmission Date: 20140127
  Serious: Yes (Life-Threatening, Hospitalization)
  Sender: FDA-Public Use
  Company Number: IT-ASTRAZENECA-2013SE17839

PATIENT
  Age: 21325 Day
  Sex: Female

DRUGS (4)
  1. SEROQUEL [Suspect]
     Indication: BIPOLAR DISORDER
     Route: 048
     Dates: start: 20121211, end: 20121211
  2. CITALOPRAM [Suspect]
     Indication: BIPOLAR DISORDER
     Route: 048
     Dates: start: 20121211, end: 20121211
  3. XANAX [Suspect]
     Indication: BIPOLAR DISORDER
     Route: 048
     Dates: start: 20121211, end: 20121211
  4. SAMYR [Suspect]
     Indication: BIPOLAR DISORDER
     Route: 048
     Dates: start: 20121211, end: 20121211

REACTIONS (8)
  - Intentional overdose [Unknown]
  - Suicide attempt [Recovering/Resolving]
  - Loss of consciousness [Recovering/Resolving]
  - Stab wound [Unknown]
  - Drug abuse [Unknown]
  - Logorrhoea [Unknown]
  - Dysarthria [Unknown]
  - Restlessness [Unknown]
